FAERS Safety Report 8928536 (Version 1)
Quarter: 2012Q4

REPORT INFORMATION
  Report Type: 
  Country: BR (occurrence: BR)
  Receive Date: 20121128
  Receipt Date: 20121128
  Transmission Date: 20130627
  Serious: Yes (Other)
  Sender: FDA-Public Use
  Company Number: BR-SANOFI-AVENTIS-2012SA086342

PATIENT
  Age: 54 Year
  Sex: Male
  Weight: 68 kg

DRUGS (7)
  1. LANTUS [Suspect]
     Indication: TYPE 2 DIABETES MELLITUS
     Route: 058
     Dates: start: 2007
  2. CLIKSTAR [Suspect]
     Indication: DEVICE THERAPY
     Dates: start: 2007
  3. AAS [Concomitant]
     Indication: BLOOD DISORDER NOS
     Route: 048
     Dates: start: 2001
  4. COZAAR [Concomitant]
     Indication: BLOOD PRESSURE
     Route: 048
     Dates: start: 2001
  5. LIPITOR /UNK/ [Concomitant]
     Indication: CHOLESTEROL
     Route: 048
     Dates: start: 2009
  6. HUMALOG [Concomitant]
     Indication: TYPE II DIABETES MELLITUS
     Dosage: According to glycaemia
     Route: 058
     Dates: start: 201204
  7. METFORMIN [Concomitant]
     Indication: TYPE II DIABETES MELLITUS
     Route: 048
     Dates: start: 2002

REACTIONS (7)
  - Prostatitis [Not Recovered/Not Resolved]
  - Pain [Not Recovered/Not Resolved]
  - Eye haemorrhage [Recovered/Resolved]
  - Cataract [Unknown]
  - Visual impairment [Unknown]
  - Glaucoma [Recovered/Resolved]
  - Eye haemorrhage [Unknown]
